FAERS Safety Report 5977768-6 (Version None)
Quarter: 2008Q4

REPORT INFORMATION
  Report Type: 
  Country: None (occurrence: None)
  Receive Date: 20081203
  Receipt Date: 20081124
  Transmission Date: 20090506
  Serious: Yes (Hospitalization)
  Sender: FDA-Public Use
  Company Number: US-ELI_LILLY_AND_COMPANY-US200811004797

PATIENT
  Age: 72 Year
  Sex: Female

DRUGS (6)
  1. HUMALOG MIX 75/25 [Suspect]
     Indication: DIABETES MELLITUS
     Dosage: 30 U, EACH MORNING
     Dates: start: 20081023
  2. HUMALOG MIX 75/25 [Suspect]
     Dosage: 10 U, EACH EVENING
     Dates: start: 20081023
  3. HUMALOG MIX 75/25 [Suspect]
     Dosage: UNK, AS NEEDED
     Dates: start: 20080101, end: 20080101
  4. HUMALOG MIX 75/25 [Suspect]
     Dates: start: 20081124, end: 20081124
  5. METFORMIN HCL [Concomitant]
     Indication: DIABETES MELLITUS
     Dosage: 500 MG, 2/D
  6. GLYBURIDE [Concomitant]
     Indication: DIABETES MELLITUS

REACTIONS (9)
  - ADVERSE DRUG REACTION [None]
  - BLOOD GLUCOSE INCREASED [None]
  - DIZZINESS [None]
  - FEELING ABNORMAL [None]
  - HYPERHIDROSIS [None]
  - INVESTIGATION [None]
  - LACRIMATION INCREASED [None]
  - THINKING ABNORMAL [None]
  - VISION BLURRED [None]
